FAERS Safety Report 17572053 (Version 1)
Quarter: 2020Q1

REPORT INFORMATION
  Report Type: Report from Study
  Country: IT (occurrence: IT)
  Receive Date: 20200323
  Receipt Date: 20200323
  Transmission Date: 20200409
  Serious: Yes (Other)
  Sender: FDA-Public Use
  Company Number: IT-RECORDATI RARE DISEASES-2081878

PATIENT
  Age: 40 Year
  Sex: Female

DRUGS (1)
  1. SIGNIFOR [Suspect]
     Active Substance: PASIREOTIDE DIASPARTATE
     Indication: PITUITARY-DEPENDENT CUSHING^S SYNDROME
     Route: 058
     Dates: start: 20170130

REACTIONS (3)
  - Diabetes mellitus [Not Recovered/Not Resolved]
  - Hypertriglyceridaemia [Unknown]
  - Cholelithiasis [Unknown]

NARRATIVE: CASE EVENT DATE: 20170222
